FAERS Safety Report 16499740 (Version 1)
Quarter: 2019Q3

REPORT INFORMATION
  Report Type: Report from Study
  Country: CA (occurrence: CA)
  Receive Date: 20190701
  Receipt Date: 20190701
  Transmission Date: 20191004
  Serious: Yes (Other)
  Sender: FDA-Public Use
  Company Number: CA-ORION CORPORATION ORION PHARMA-TREX2019-2080

PATIENT
  Age: 58 Year
  Sex: Male

DRUGS (5)
  1. ACETAMINOPHEN. [Suspect]
     Active Substance: ACETAMINOPHEN
     Route: 065
  2. COSENTYX [Suspect]
     Active Substance: SECUKINUMAB
     Indication: PSORIASIS
     Route: 058
  3. ACITRETIN. [Concomitant]
     Active Substance: ACITRETIN
     Route: 065
  4. METHOTREXATE (TRADE NAME UNKNOWN) [Suspect]
     Active Substance: METHOTREXATE
     Indication: PRODUCT USED FOR UNKNOWN INDICATION
     Route: 065
  5. ACETAMINOPHEN. [Suspect]
     Active Substance: ACETAMINOPHEN
     Indication: ANGIOEDEMA
     Route: 065

REACTIONS (7)
  - Haematuria [Recovered/Resolved]
  - Lip swelling [Recovered/Resolved]
  - Peripheral swelling [Recovered/Resolved]
  - Swollen tongue [Recovered/Resolved]
  - Joint swelling [Recovered/Resolved]
  - Paraesthesia [Recovered/Resolved]
  - Angioedema [Recovered/Resolved]
